FAERS Safety Report 10074562 (Version 1)
Quarter: 2014Q2

REPORT INFORMATION
  Report Type: Spontaneous
  Country: US (occurrence: US)
  Receive Date: 20140411
  Receipt Date: 20140411
  Transmission Date: 20141212
  Serious: No
  Sender: FDA-Public Use
  Company Number: US-SA-2014SA014141

PATIENT
  Age: 30 Year
  Sex: Female

DRUGS (2)
  1. ALLEGRA D [Suspect]
     Indication: HYPERSENSITIVITY
     Route: 048
     Dates: start: 20140129, end: 20140129
  2. ALLEGRA D [Suspect]
     Indication: ASTHMA
     Route: 048
     Dates: start: 20140129, end: 20140129

REACTIONS (4)
  - Malaise [Unknown]
  - Feeling abnormal [Unknown]
  - Dizziness [Unknown]
  - Drug prescribing error [Unknown]
